FAERS Safety Report 7927749-8 (Version None)
Quarter: 2011Q4

REPORT INFORMATION
  Report Type: 
  Country: None (occurrence: None)
  Receive Date: 20111118
  Receipt Date: 20110628
  Transmission Date: 20120403
  Serious: No
  Sender: FDA-Public Use
  Company Number: US-BRISTOL-MYERS SQUIBB COMPANY-15799539

PATIENT
  Age: 76 Year
  Sex: Female

DRUGS (5)
  1. AMARYL [Concomitant]
  2. DIOVAN [Concomitant]
  3. LEVOXYL [Concomitant]
  4. GLUCOPHAGE XR [Suspect]
     Dosage: USED REGULAR 1000MG AND USED 500MG HALF
     Dates: start: 20110401
  5. LIPITOR [Concomitant]

REACTIONS (1)
  - WRONG TECHNIQUE IN DRUG USAGE PROCESS [None]
